FAERS Safety Report 6287482-8 (Version None)
Quarter: 2009Q3

REPORT INFORMATION
  Report Type: 
  Country: None (occurrence: None)
  Receive Date: 20090727
  Receipt Date: 20090702
  Transmission Date: 20100115
  Serious: Yes (Hospitalization)
  Sender: FDA-Public Use
  Company Number: 2009008485

PATIENT

DRUGS (1)
  1. TRISENOX [Suspect]
     Indication: NEUROBLASTOMA
     Dosage: INTRAVENOUS DRIP
     Route: 041

REACTIONS (12)
  - BACK PAIN [None]
  - CATHETER RELATED COMPLICATION [None]
  - CHILLS [None]
  - DIARRHOEA [None]
  - DIZZINESS [None]
  - LOBAR PNEUMONIA [None]
  - NECK PAIN [None]
  - ORTHOSTATIC HYPOTENSION [None]
  - PAIN IN EXTREMITY [None]
  - PANCYTOPENIA [None]
  - SINUS TACHYCARDIA [None]
  - TREMOR [None]
